FAERS Safety Report 6639291-5 (Version None)
Quarter: 2010Q1

REPORT INFORMATION
  Report Type: 
  Country: None (occurrence: None)
  Receive Date: 20100315
  Receipt Date: 20100225
  Transmission Date: 20100710
  Serious: Yes (Death)
  Sender: FDA-Public Use
  Company Number: 2010VX000049

PATIENT
  Age: 18 Year
  Sex: Male

DRUGS (4)
  1. DIASTAT [Suspect]
     Indication: DRUG USE FOR UNKNOWN INDICATION
  2. TRAMADOL HCL [Suspect]
     Indication: DRUG USE FOR UNKNOWN INDICATION
  3. ESCITALOPRAM [Suspect]
     Indication: DRUG USE FOR UNKNOWN INDICATION
  4. PAROXETINE HCL [Suspect]
     Indication: DRUG USE FOR UNKNOWN INDICATION

REACTIONS (15)
  - AREFLEXIA [None]
  - ASPIRATION [None]
  - BRAIN DEATH [None]
  - BRAIN OEDEMA [None]
  - COMPLETED SUICIDE [None]
  - HEART RATE INCREASED [None]
  - HYPOXIC ENCEPHALOPATHY [None]
  - INTENTIONAL OVERDOSE [None]
  - POISONING [None]
  - PULSE ABSENT [None]
  - PUPIL FIXED [None]
  - RESPIRATION ABNORMAL [None]
  - RESPIRATORY DISTRESS [None]
  - THROMBOSIS [None]
  - UNRESPONSIVE TO STIMULI [None]
